FAERS Safety Report 13622313 (Version 1)
Quarter: 2017Q2

REPORT INFORMATION
  Report Type: Report from Study
  Country: NL (occurrence: NL)
  Receive Date: 20170607
  Receipt Date: 20170607
  Transmission Date: 20170830
  Serious: Yes (Hospitalization)
  Sender: FDA-Public Use
  Company Number: NL-TEVA-776132ROM

PATIENT
  Age: 80 Year
  Sex: Female

DRUGS (13)
  1. DOXORUBICINE [Suspect]
     Active Substance: DOXORUBICIN
     Indication: NON-HODGKIN^S LYMPHOMA
     Dosage: LAST ADMINISTRATION DATE BEFORE AE OCCURENCE 03-JAN-2017
     Route: 042
     Dates: start: 20161206
  2. ONDANSETRON [Concomitant]
     Active Substance: ONDANSETRON
     Indication: PROPHYLAXIS
     Dosage: ONGOING
     Route: 048
     Dates: start: 20161206
  3. LONQUEX 6MG OPLOSSING VOOR INJECTIE [Suspect]
     Active Substance: LIPEGFILGRASTIM
     Indication: PROPHYLAXIS
     Dosage: LAST ADMINISTRATION DATE BEFORE AE OCCURENCE 04-JAN-2017
     Route: 050
     Dates: start: 20170104
  4. RITUXIMAB [Suspect]
     Active Substance: RITUXIMAB
     Indication: NON-HODGKIN^S LYMPHOMA
     Dosage: LAST ADMINISTRATION DATE BEFORE AE OCCURENCE 03-JAN-2017
     Route: 042
     Dates: start: 20161206
  5. ACETYLCYSTEINE 600 MG [Concomitant]
     Indication: TRACHEOBRONCHIAL STENT INSERTION
     Dosage: STARTDATE UNKNOWN
     Route: 055
     Dates: end: 20170408
  6. VINCRISTINE [Suspect]
     Active Substance: VINCRISTINE
     Indication: NON-HODGKIN^S LYMPHOMA
     Dosage: LAST ADMINISTRATION DATE BEFORE AE OCCURENCE 03-JAN-2017
     Route: 042
     Dates: start: 20161206
  7. MUCOCLEAR 3% [Concomitant]
     Indication: TRACHEOBRONCHIAL STENT INSERTION
     Dosage: START DATE: UNKNOWN
     Route: 050
     Dates: end: 20170408
  8. CYCLOPHOSFAMIDE [Suspect]
     Active Substance: CYCLOPHOSPHAMIDE
     Indication: NON-HODGKIN^S LYMPHOMA
     Dosage: LAST ADMINISTRATION DATE BEFORE AE OCCURENCE 03-JAN-2017
     Route: 042
     Dates: start: 20161206
  9. LORAZEPAM. [Concomitant]
     Active Substance: LORAZEPAM
     Indication: ANXIETY
     Dosage: START DATE: UNKNOWN
     Route: 048
     Dates: end: 20170408
  10. SIMVASTATINE [Concomitant]
     Active Substance: SIMVASTATIN
     Indication: HYPERCHOLESTEROLAEMIA
     Dosage: 40 MILLIGRAM DAILY;
     Route: 048
     Dates: end: 20170408
  11. PARACETAMOL 1000MG [Concomitant]
     Indication: PROPHYLAXIS
     Dosage: 40 MILLIGRAM DAILY;
     Route: 048
     Dates: end: 20170408
  12. OMEPRAZOL [Concomitant]
     Active Substance: OMEPRAZOLE
     Indication: PROPHYLAXIS
     Dosage: 40 MILLIGRAM DAILY;
     Route: 048
     Dates: end: 20170408
  13. IPRAMOL [Concomitant]
     Active Substance: ALBUTEROL SULFATE\IPRATROPIUM BROMIDE
     Indication: TRACHEOBRONCHIAL STENT INSERTION
     Dosage: AS NEEDED 1 VIAL, STARTDATE UNKNOWN
     Dates: end: 20170408

REACTIONS (1)
  - Gastroenteritis norovirus [Recovered/Resolved]

NARRATIVE: CASE EVENT DATE: 20170104
